FAERS Safety Report 8666386 (Version 2)
Quarter: 2012Q4

REPORT INFORMATION
  Report Type: Report from Study
  Country: HN (occurrence: HN)
  Receive Date: 20120716
  Receipt Date: 20120924
  Transmission Date: 20130627
  Serious: Yes (Hospitalization)
  Sender: FDA-Public Use
  Company Number: HN-ROCHE-1086335

PATIENT
  Age: 56 None
  Sex: Female

DRUGS (4)
  1. BONVIVA [Suspect]
     Indication: OSTEOPOROSIS
     Route: 048
     Dates: start: 20110114
  2. IMURAN [Concomitant]
     Indication: SYSTEMIC LUPUS ERYTHEMATOSUS
  3. ASPIRIN [Concomitant]
  4. CALCIUM [Concomitant]

REACTIONS (2)
  - Cholelithiasis [Recovering/Resolving]
  - Uterine operation [Recovering/Resolving]
